FAERS Safety Report 6663522-9 (Version None)
Quarter: 2010Q2

REPORT INFORMATION
  Report Type: 
  Country: None (occurrence: None)
  Receive Date: 20100401
  Receipt Date: 20100322
  Transmission Date: 20101027
  Serious: Yes (Life-Threatening)
  Sender: FDA-Public Use
  Company Number: ES-BAYER-201019633GPV

PATIENT
  Age: 78 Year
  Sex: Male
  Weight: 65 kg

DRUGS (13)
  1. ASPIRIN [Suspect]
     Indication: ACUTE MYOCARDIAL INFARCTION
     Dosage: TOTAL DAILY DOSE: 100 MG  UNIT DOSE: 100 MG
     Route: 048
     Dates: start: 20091126
  2. PLAVIX [Suspect]
     Indication: ACUTE MYOCARDIAL INFARCTION
     Dosage: TOTAL DAILY DOSE: 75 MG  UNIT DOSE: 75 MG
     Route: 048
     Dates: start: 20091126, end: 20100112
  3. RANITIDINA [Suspect]
     Indication: PROPHYLAXIS AGAINST GASTROINTESTINAL ULCER
     Dosage: TOTAL DAILY DOSE: 300 MG  UNIT DOSE: 300 MG
     Route: 048
     Dates: start: 20091127, end: 20100112
  4. GLIMEPIRIDA STADA [Suspect]
     Indication: DIABETES MELLITUS
     Dosage: TOTAL DAILY DOSE: 1 MG  UNIT DOSE: 2 MG
     Route: 048
     Dates: start: 20091110, end: 20100112
  5. COZAAR [Suspect]
     Indication: ACUTE MYOCARDIAL INFARCTION
     Dosage: TOTAL DAILY DOSE: 50 MG  UNIT DOSE: 50 MG
     Route: 048
     Dates: start: 20091210, end: 20100112
  6. COZAAR [Suspect]
     Dosage: TOTAL DAILY DOSE: 50 MG  UNIT DOSE: 50 MG
     Route: 048
     Dates: start: 20091204, end: 20091205
  7. EZETROL [Suspect]
     Indication: ACUTE MYOCARDIAL INFARCTION
     Dosage: TOTAL DAILY DOSE: 20 MG  UNIT DOSE: 10 MG
     Route: 048
     Dates: start: 20091216, end: 20100112
  8. EMCONCOR COR [Suspect]
     Indication: ACUTE MYOCARDIAL INFARCTION
     Dosage: TOTAL DAILY DOSE: 2.5 MG  UNIT DOSE: 2.5 MG
     Route: 048
     Dates: start: 20091210, end: 20100112
  9. METFORMIN HCL [Suspect]
     Indication: DIABETES MELLITUS
     Dosage: TOTAL DAILY DOSE: 850 MG
     Route: 048
     Dates: start: 20090101, end: 20100113
  10. CAPTOPRIL [Suspect]
     Indication: ACUTE MYOCARDIAL INFARCTION
     Route: 048
     Dates: start: 20091127, end: 20091204
  11. RONAME [Suspect]
     Indication: ACUTE MYOCARDIAL INFARCTION
     Dosage: TOTAL DAILY DOSE: 1 MG  UNIT DOSE: 2 MG
     Route: 048
     Dates: start: 20090101, end: 20091204
  12. CETIRIZINE HCL [Suspect]
     Indication: URTICARIA
     Dosage: TOTAL DAILY DOSE: 20 MG
     Route: 048
     Dates: start: 20091204, end: 20091207
  13. ZARATOR [Suspect]
     Indication: ACUTE MYOCARDIAL INFARCTION
     Dosage: TOTAL DAILY DOSE: 80 MG  UNIT DOSE: 80 MG
     Route: 048
     Dates: start: 20091127, end: 20091204

REACTIONS (1)
  - NEUTROPENIA [None]
